FAERS Safety Report 4996998-3 (Version None)
Quarter: 2006Q2

REPORT INFORMATION
  Report Type: 
  Country: None (occurrence: None)
  Receive Date: 20060508
  Receipt Date: 20060508
  Transmission Date: 20061013
  Serious: Yes (Other)
  Sender: FDA-Public Use
  Company Number: None

PATIENT
  Age: 7 Year
  Sex: Male
  Weight: 14 kg

DRUGS (2)
  1. HUMATE-P [Suspect]
     Indication: FACTOR VIII DEFICIENCY
     Dosage: 1500 FACTOR 8 UNITS IV EVERY OTHER DAY [LAST 7 YEARS ]
     Route: 042
  2. HUMATE-P [Suspect]
     Indication: VON WILLEBRAND'S DISEASE
     Dosage: 1500 FACTOR 8 UNITS IV EVERY OTHER DAY [LAST 7 YEARS ]
     Route: 042

REACTIONS (1)
  - PHARMACEUTICAL PRODUCT COMPLAINT [None]
